FAERS Safety Report 15441165 (Version 2)
Quarter: 2018Q4

REPORT INFORMATION
  Report Type: Report from Study
  Country: None (occurrence: RU)
  Receive Date: 20180928
  Receipt Date: 20181004
  Transmission Date: 20190204
  Serious: Yes (Death, Other)
  Sender: FDA-Public Use
  Company Number: RU-ABBVIE-18P-251-2502790-00

PATIENT
  Age: 66 Year
  Sex: Female
  Weight: 62 kg

DRUGS (4)
  1. VENETOCLAX. [Suspect]
     Active Substance: VENETOCLAX
     Route: 048
     Dates: start: 20180911, end: 20180918
  2. VENETOCLAX. [Suspect]
     Active Substance: VENETOCLAX
     Indication: CHRONIC LYMPHOCYTIC LEUKAEMIA
     Route: 048
     Dates: start: 20180819, end: 20180826
  3. VENETOCLAX. [Suspect]
     Active Substance: VENETOCLAX
     Route: 048
     Dates: start: 20180827, end: 20180903
  4. VENETOCLAX. [Suspect]
     Active Substance: VENETOCLAX
     Route: 048
     Dates: start: 20180904, end: 20180910

REACTIONS (6)
  - Hepatitis toxic [Unknown]
  - Richter^s syndrome [Fatal]
  - Poisoning [Fatal]
  - Chronic lymphocytic leukaemia [Fatal]
  - Pancytopenia [Unknown]
  - Hepatic failure [Unknown]

NARRATIVE: CASE EVENT DATE: 2018
